FAERS Safety Report 7358401-8 (Version None)
Quarter: 2011Q1

REPORT INFORMATION
  Report Type: 
  Country: None (occurrence: None)
  Receive Date: 20110317
  Receipt Date: 20110301
  Transmission Date: 20110831
  Serious: Yes (Hospitalization)
  Sender: FDA-Public Use
  Company Number: US-ENDO PHARMACEUTICALS INC.-OXYC20110005

PATIENT
  Sex: Female

DRUGS (2)
  1. VICODIN [Suspect]
     Dosage: UNK
  2. OXYCODONE HCL [Suspect]
     Dosage: UNK
     Route: 048

REACTIONS (1)
  - MALAISE [None]
